FAERS Safety Report 4766285-7 (Version None)
Quarter: 2005Q3

REPORT INFORMATION
  Report Type: 
  Country: None (occurrence: None)
  Receive Date: 20050906
  Receipt Date: 20050818
  Transmission Date: 20060218
  Serious: Yes (Hospitalization)
  Sender: FDA-Public Use
  Company Number: USA050599132

PATIENT
  Age: 71 Year
  Sex: Female

DRUGS (6)
  1. FORTEO [Suspect]
     Indication: OSTEOPOROSIS
     Dosage: 20 UG DAY
     Dates: start: 20050301
  2. ZANTAC [Concomitant]
  3. CLARITIN [Concomitant]
  4. TAMOXIFEN CITRATE [Concomitant]
  5. XANAX [Concomitant]
  6. DITROPAN XL [Concomitant]

REACTIONS (5)
  - DYSARTHRIA [None]
  - LABYRINTHITIS [None]
  - PHARMACEUTICAL PRODUCT COMPLAINT [None]
  - PRURITUS [None]
  - RASH [None]
